FAERS Safety Report 10158729 (Version 1)
Quarter: 2014Q2

REPORT INFORMATION
  Report Type: Spontaneous
  Country: US (occurrence: US)
  Receive Date: 20140508
  Receipt Date: 20140508
  Transmission Date: 20141212
  Serious: No
  Sender: FDA-Public Use
  Company Number: US-BIOGENIDEC-2014BI036734

PATIENT
  Age: 49 Year
  Sex: Female

DRUGS (10)
  1. TECFIDERA [Suspect]
     Indication: MULTIPLE SCLEROSIS
     Route: 048
  2. TECFIDERA [Suspect]
     Indication: MULTIPLE SCLEROSIS
  3. HYDROCODONE-ACETAMINOPHEN [Concomitant]
  4. TRAZODONE HCL [Concomitant]
  5. VYVNASE [Concomitant]
  6. XANAX [Concomitant]
  7. CALCIUM +D [Concomitant]
  8. FISH OIL [Concomitant]
  9. IRON [Concomitant]
  10. VITAMIN D3 [Concomitant]

REACTIONS (5)
  - Urticaria [Unknown]
  - Headache [Unknown]
  - Diarrhoea [Recovered/Resolved]
  - Vomiting [Recovered/Resolved]
  - Nausea [Unknown]
